FAERS Safety Report 5614344-9 (Version None)
Quarter: 2008Q1

REPORT INFORMATION
  Report Type: 
  Country: None (occurrence: None)
  Receive Date: 20080205
  Receipt Date: 20080124
  Transmission Date: 20080703
  Serious: Yes (Other)
  Sender: FDA-Public Use
  Company Number: US-PFIZER INC-2008006537

PATIENT
  Sex: Female
  Weight: 61.2 kg

DRUGS (9)
  1. ZOLOFT [Suspect]
     Indication: INSOMNIA
  2. ZOLOFT [Interacting]
     Indication: BELLIGERENCE
  3. REMERON [Interacting]
  4. WARFARIN SODIUM [Concomitant]
     Dosage: DAILY DOSE:5MG
  5. LOVASTATIN [Concomitant]
     Dosage: DAILY DOSE:20MG
  6. LASIX [Concomitant]
     Dosage: DAILY DOSE:40MG
  7. LEVOTHYROXINE SODIUM [Concomitant]
     Dosage: DAILY DOSE:.05MCG
  8. METOPROLOL TARTRATE [Concomitant]
  9. AVELOX [Concomitant]

REACTIONS (11)
  - AGITATION [None]
  - BIPOLAR DISORDER [None]
  - DIZZINESS [None]
  - DRUG INTERACTION [None]
  - EMOTIONAL DISORDER [None]
  - LETHARGY [None]
  - SEROTONIN SYNDROME [None]
  - SLEEP TALKING [None]
  - SOMNAMBULISM [None]
  - SPEECH DISORDER [None]
  - TREMOR [None]
